FAERS Safety Report 9192330 (Version 2)
Quarter: 2013Q2

REPORT INFORMATION
  Report Type: Spontaneous
  Country: US (occurrence: None)
  Receive Date: 20120703
  Receipt Date: 20121031
  Transmission Date: 20140414
  Serious: Yes (Other)
  Sender: FDA-Public Use
  Company Number: PHEH2012US011093

PATIENT
  Age: 53 Year
  Sex: Male

DRUGS (6)
  1. GILENYA [Suspect]
     Indication: MULTIPLE SCLEROSIS
     Route: 048
     Dates: start: 20120525
  2. COUMADIN (WARFARIN SODIUM) [Concomitant]
  3. SIMVASTATIN (SIMVASTATIN) [Concomitant]
  4. DILANTIN (PHENYTOIN SODIUM) [Concomitant]
  5. ZYRTEC (CETIRIZINE HYDROCHLORIDE) [Concomitant]
  6. MUCINEX(GAUIFENESIN) [Concomitant]

REACTIONS (1)
  - Electrocardiogram T wave abnormal [None]
